FAERS Safety Report 19023645 (Version 4)
Quarter: 2021Q2

REPORT INFORMATION
  Report Type: Report from Study
  Country: US (occurrence: US)
  Receive Date: 20210318
  Receipt Date: 20210616
  Transmission Date: 20210717
  Serious: Yes (Death, Hospitalization)
  Sender: FDA-Public Use
  Company Number: US-ROCHE-2791838

PATIENT
  Age: 53 Year
  Sex: Male
  Weight: 75.28 kg

DRUGS (39)
  1. SODIUM BICARBONATE. [Concomitant]
     Active Substance: SODIUM BICARBONATE
  2. GALCANEZUMAB [Concomitant]
     Active Substance: GALCANEZUMAB
  3. ONDANSETRON [Concomitant]
     Active Substance: ONDANSETRON
  4. METHADONE [Concomitant]
     Active Substance: METHADONE HYDROCHLORIDE
  5. ACETAMINOPHEN. [Concomitant]
     Active Substance: ACETAMINOPHEN
  6. IBUPROFEN. [Concomitant]
     Active Substance: IBUPROFEN
  7. KEYTRUDA [Concomitant]
     Active Substance: PEMBROLIZUMAB
  8. NEBIVOLOL. [Concomitant]
     Active Substance: NEBIVOLOL
  9. MELATONIN [Concomitant]
     Active Substance: MELATONIN
  10. DEXAMETHASONE. [Concomitant]
     Active Substance: DEXAMETHASONE
  11. GLUCOPHAGE [Concomitant]
     Active Substance: METFORMIN HYDROCHLORIDE
  12. ZOMIG [Concomitant]
     Active Substance: ZOLMITRIPTAN
  13. DOCUSATE SODIUM + SENNA [Concomitant]
     Active Substance: DOCUSATE SODIUM\SENNOSIDE A\SENNOSIDE B
  14. LIDOCAINE. [Concomitant]
     Active Substance: LIDOCAINE
  15. FAMOTIDINE. [Concomitant]
     Active Substance: FAMOTIDINE
  16. ATORVASTATIN [Concomitant]
     Active Substance: ATORVASTATIN
  17. GABAPENTIN. [Concomitant]
     Active Substance: GABAPENTIN
  18. ALPRAZOLAM. [Concomitant]
     Active Substance: ALPRAZOLAM
  19. TAMSULOSIN [Concomitant]
     Active Substance: TAMSULOSIN
  20. ALBUTEROL;IPRATROPIUM [Concomitant]
     Active Substance: ALBUTEROL\IPRATROPIUM
  21. ESCITALOPRAM [Concomitant]
     Active Substance: ESCITALOPRAM OXALATE
  22. AMBIEN CR [Concomitant]
     Active Substance: ZOLPIDEM TARTRATE
  23. MORPHINE [Concomitant]
     Active Substance: MORPHINE
  24. ZOLPIDEM [Concomitant]
     Active Substance: ZOLPIDEM TARTRATE
  25. ZEBETA [Concomitant]
     Active Substance: BISOPROLOL FUMARATE
  26. FAMOTIDINE. [Concomitant]
     Active Substance: FAMOTIDINE
  27. TAXOTERE [Concomitant]
     Active Substance: DOCETAXEL
  28. COBIMETINIB. [Suspect]
     Active Substance: COBIMETINIB
     Indication: NON-SMALL CELL LUNG CANCER
     Dosage: BIWEEKLY (DAY 1 AND DAY 2)?ON 03/MAR/2021, HE RECEIVED LAST DOSE OF COBIMETINIB PRIOR TO ONSET OF SE
     Route: 048
     Dates: start: 20210216, end: 20210309
  29. MEBENDAZOLE. [Concomitant]
     Active Substance: MEBENDAZOLE
  30. NARCAN [Concomitant]
     Active Substance: NALOXONE HYDROCHLORIDE
  31. NALOXONE [Concomitant]
     Active Substance: NALOXONE
  32. OXYGEN. [Concomitant]
     Active Substance: OXYGEN
  33. CANNABIDIOL [Concomitant]
     Active Substance: CANNABIDIOL
  34. METAMUCIL PLUS CALCIUM [Concomitant]
  35. ASPIRIN. [Concomitant]
     Active Substance: ASPIRIN
  36. TRAZODONE [Concomitant]
     Active Substance: TRAZODONE HYDROCHLORIDE
  37. PROCHLORPERAZINE. [Concomitant]
     Active Substance: PROCHLORPERAZINE
  38. CURCUMIN [Concomitant]
     Active Substance: CURCUMIN
  39. AMLODIPINE [Concomitant]
     Active Substance: AMLODIPINE BESYLATE

REACTIONS (1)
  - Pneumonitis [Fatal]

NARRATIVE: CASE EVENT DATE: 20210307
